FAERS Safety Report 6016632-3 (Version None)
Quarter: 2008Q4

REPORT INFORMATION
  Report Type: 
  Country: None (occurrence: None)
  Receive Date: 20081222
  Receipt Date: 20081215
  Transmission Date: 20090506
  Serious: Yes (Other)
  Sender: FDA-Public Use
  Company Number: PHHY2008CA32088

PATIENT
  Sex: Female

DRUGS (1)
  1. ZOLEDRONIC ACID [Suspect]
     Dosage: UNK
     Dates: start: 20081126

REACTIONS (3)
  - EYE HAEMORRHAGE [None]
  - LACRIMATION INCREASED [None]
  - PHOTOPHOBIA [None]
